FAERS Safety Report 8677449 (Version 3)
Quarter: 2012Q4

REPORT INFORMATION
  Report Type: Report from Study
  Country: GB (occurrence: GB)
  Receive Date: 20120723
  Receipt Date: 20121002
  Transmission Date: 20130627
  Serious: Yes (Other)
  Sender: FDA-Public Use
  Company Number: GB-CELGENEUS-167-21880-12071203

PATIENT
  Age: 65 Year
  Sex: Male
  Weight: 90 kg

DRUGS (2)
  1. REVLIMID [Suspect]
     Indication: CHRONIC LYMPHATIC LEUKEMIA
     Dosage: 10 Milligram
     Route: 048
     Dates: start: 201201
  2. REVLIMID [Suspect]
     Dosage: 10 Milligram
     Route: 048

REACTIONS (2)
  - Prostate cancer stage II [Unknown]
  - Neutropenia [Unknown]
